FAERS Safety Report 5259529-9 (Version None)
Quarter: 2007Q1

REPORT INFORMATION
  Report Type: 
  Country: None (occurrence: None)
  Receive Date: 20070306
  Receipt Date: 20070223
  Transmission Date: 20070707
  Serious: Yes (Hospitalization)
  Sender: FDA-Public Use
  Company Number: GXBR2007US00675

PATIENT
  Age: 54 Year
  Sex: Female

DRUGS (8)
  1. ATENOLOL [Suspect]
     Indication: HYPERTENSION
     Dosage: 100 MG, QD
  2. SPIRONOLACTONE [Suspect]
     Dosage: 2 5MG, BID
  3. PRINIVIL [Suspect]
     Indication: HYPERTENSION
     Dosage: 40 MG, QD, ORAL
     Route: 048
  4. CARTIA XT [Suspect]
     Indication: HYPERTENSION
     Dosage: 360 MG
  5. POTASSIUM(POTASSIUM) [Suspect]
     Indication: MINERAL SUPPLEMENTATION
     Dosage: 20 MEQ, QD
  6. CLONIDINE [Concomitant]
  7. GLYBURIDE [Concomitant]
  8. WARFARIN SODIUM [Concomitant]

REACTIONS (11)
  - ABDOMINAL DISCOMFORT [None]
  - BLOOD GLUCOSE INCREASED [None]
  - BLOOD POTASSIUM INCREASED [None]
  - BLOOD PRESSURE SYSTOLIC DECREASED [None]
  - DECREASED APPETITE [None]
  - HEART RATE DECREASED [None]
  - HYPOKALAEMIA [None]
  - NAUSEA [None]
  - ORAL INTAKE REDUCED [None]
  - SYNCOPE [None]
  - VOMITING [None]
